FAERS Safety Report 20204069 (Version 1)
Quarter: 2021Q4

REPORT INFORMATION
  Report Type: Spontaneous
  Country: AR (occurrence: AR)
  Receive Date: 20211220
  Receipt Date: 20211220
  Transmission Date: 20220303
  Serious: Yes (Other)
  Sender: FDA-Public Use
  Company Number: AR-PFIZER INC-202101750316

PATIENT
  Age: 18 Year
  Sex: Female

DRUGS (3)
  1. ENBREL [Suspect]
     Active Substance: ETANERCEPT
     Indication: Juvenile idiopathic arthritis
     Dosage: 50 MG, WEEKLY
     Route: 065
     Dates: start: 20190730
  2. IBUEVANOL EXTRA RAPIDA ACCION [Concomitant]
     Dosage: UNK
  3. OMEPRAZOLE [Concomitant]
     Active Substance: OMEPRAZOLE
     Dosage: UNK

REACTIONS (9)
  - Musculoskeletal disorder [Recovered/Resolved]
  - Bone pain [Recovered/Resolved]
  - Feeling cold [Recovered/Resolved]
  - Sensitivity to weather change [Recovered/Resolved]
  - Pain in extremity [Recovered/Resolved]
  - Liver disorder [Recovered/Resolved]
  - Fatigue [Recovered/Resolved]
  - Pain [Recovered/Resolved]
  - Pyrexia [Recovered/Resolved]

NARRATIVE: CASE EVENT DATE: 20211206
